FAERS Safety Report 6511780-3 (Version None)
Quarter: 2009Q4

REPORT INFORMATION
  Report Type: 
  Country: None (occurrence: None)
  Receive Date: 20091222
  Receipt Date: 20090407
  Transmission Date: 20100525
  Serious: Yes (Other)
  Sender: FDA-Public Use
  Company Number: US-ASTRAZENECA-2009UW08772

PATIENT
  Age: 58 Year
  Sex: Male

DRUGS (5)
  1. CRESTOR [Suspect]
     Route: 048
  2. PANTOPRAZOLE [Concomitant]
  3. SIMVASTATIN [Concomitant]
  4. SYNTHROID [Concomitant]
  5. ADANDAMET [Concomitant]

REACTIONS (1)
  - PANCREATITIS ACUTE [None]
